FAERS Safety Report 6519629-X (Version None)
Quarter: 2009Q4

REPORT INFORMATION
  Report Type: 
  Country: None (occurrence: None)
  Receive Date: 20091228
  Receipt Date: 20091218
  Transmission Date: 20100525
  Serious: Yes (Life-Threatening)
  Sender: FDA-Public Use
  Company Number: NZ-ABBOTT-09P-118-0615317-00

PATIENT

DRUGS (1)
  1. SEVOFLURANE [Suspect]
     Indication: DRUG EXPOSURE DURING PREGNANCY
     Route: 064

REACTIONS (3)
  - APNOEA [None]
  - DRUG EXPOSURE DURING PREGNANCY [None]
  - HYPOTONIA [None]
